FAERS Safety Report 4618928-6 (Version None)
Quarter: 2005Q2

REPORT INFORMATION
  Report Type: 
  Country: None (occurrence: None)
  Receive Date: 20050302
  Receipt Date: 20040422
  Transmission Date: 20051028
  Serious: Yes (Life-Threatening, Other)
  Sender: FDA-Public Use
  Company Number: 200417710BWH

PATIENT
  Age: 9 Year
  Sex: Male
  Weight: 32.4 kg

DRUGS (4)
  1. TRASYLOL [Suspect]
     Indication: AORTIC VALVE REPLACEMENT
     Dosage: 1 ML, TOTAL DAILY, INTRAVENOUS
     Route: 042
     Dates: start: 20040120
  2. FENTANYL [Concomitant]
  3. PANCURONIUM [Concomitant]
  4. SEVOFLURANE [Concomitant]

REACTIONS (3)
  - ANAPHYLACTIC REACTION [None]
  - BLOOD PRESSURE INCREASED [None]
  - OBSTRUCTIVE AIRWAYS DISORDER [None]
